FAERS Safety Report 9645381 (Version 1)
Quarter: 2013Q4

REPORT INFORMATION
  Report Type: Spontaneous
  Country: FR (occurrence: FR)
  Receive Date: 20131025
  Receipt Date: 20131025
  Transmission Date: 20140711
  Serious: Yes (Hospitalization)
  Sender: FDA-Public Use
  Company Number: FR-PFIZER INC-2013299669

PATIENT
  Age: 90 Year
  Sex: Female

DRUGS (13)
  1. XANAX [Suspect]
     Dosage: UNK
     Route: 048
     Dates: end: 20130916
  2. PREVISCAN [Suspect]
     Indication: ATRIAL FIBRILLATION
     Dosage: UNK
     Route: 048
     Dates: end: 20130916
  3. DOLIPRANE [Suspect]
     Indication: BACK PAIN
     Dosage: UNK
     Route: 048
     Dates: end: 20130916
  4. LAMALINE [Suspect]
     Dosage: UNK
     Route: 048
     Dates: end: 20130916
  5. SIFROL [Suspect]
     Dosage: UNK
     Route: 048
     Dates: end: 20130916
  6. OXYCONTIN [Suspect]
     Dosage: UNK
     Route: 048
     Dates: end: 20130916
  7. LASILIX [Concomitant]
     Dosage: UNK
  8. CARDENSIEL [Concomitant]
     Dosage: UNK
  9. INEXIUM /01479302/ [Concomitant]
     Dosage: UNK
  10. FLECTOR [Concomitant]
     Dosage: UNK
  11. ADARTREL [Concomitant]
     Dosage: UNK
  12. LANTUS [Concomitant]
     Dosage: UNK
  13. NOVORAPID [Concomitant]
     Dosage: UNK

REACTIONS (4)
  - Hepatitis [Recovering/Resolving]
  - Agitation [Unknown]
  - Confusional state [Unknown]
  - Haematoma [Recovered/Resolved]
